FAERS Safety Report 16555598 (Version 2)
Quarter: 2020Q1

REPORT INFORMATION
  Report Type: Spontaneous
  Country: FR (occurrence: FR)
  Receive Date: 20190710
  Receipt Date: 20200213
  Transmission Date: 20200409
  Serious: Yes (Life-Threatening)
  Sender: FDA-Public Use
  Company Number: FR-PFIZER INC-2019291476

PATIENT
  Age: 70 Year
  Sex: Female
  Weight: 66 kg

DRUGS (5)
  1. ATRACURIUM BESILATE [Suspect]
     Active Substance: ATRACURIUM BESYLATE
     Indication: ANALGESIC THERAPY
     Dosage: 15 UG, SINGLE ANALGESIA
     Route: 042
     Dates: start: 20190514, end: 20190514
  2. ATRACURIUM BESILATE [Suspect]
     Active Substance: ATRACURIUM BESYLATE
     Indication: NEUROMUSCULAR BLOCKING THERAPY
     Dosage: 30 MG, SINGLE CURARISATION
     Route: 042
     Dates: start: 20190514, end: 20190514
  3. ATRACURIUM BESILATE [Suspect]
     Active Substance: ATRACURIUM BESYLATE
     Indication: SEDATION
     Dosage: 300 MG, SINGLE SEDATION
     Route: 042
     Dates: start: 20190514, end: 20190515
  4. ATRACURIUM BESILATE [Suspect]
     Active Substance: ATRACURIUM BESYLATE
     Dosage: 15 MG, SINGLE CURARISATION
     Route: 042
     Dates: start: 20190514, end: 20190514
  5. ATRACURIUM BESILATE [Suspect]
     Active Substance: ATRACURIUM BESYLATE
     Dosage: 10 MG, SINGLE CURARISATION
     Route: 042
     Dates: start: 20190514, end: 20190514

REACTIONS (2)
  - Therapeutic product ineffective [Recovered/Resolved]
  - Bronchospasm [Recovered/Resolved]

NARRATIVE: CASE EVENT DATE: 20190514
